FAERS Safety Report 12936217 (Version 2)
Quarter: 2016Q4

REPORT INFORMATION
  Report Type: Spontaneous
  Country: US (occurrence: US)
  Receive Date: 20161114
  Receipt Date: 20161118
  Transmission Date: 20170207
  Serious: No
  Sender: FDA-Public Use
  Company Number: US-009507513-1611USA002005

PATIENT

DRUGS (3)
  1. STERILE DILUENT [Suspect]
     Active Substance: WATER
     Dosage: UNK
  2. STERILE DILUENT [Suspect]
     Active Substance: WATER
     Dosage: UNK
  3. STERILE DILUENT [Suspect]
     Active Substance: WATER
     Dosage: UNK

REACTIONS (2)
  - No adverse event [Unknown]
  - Incorrect product storage [Unknown]
